FAERS Safety Report 6406507-X (Version None)
Quarter: 2009Q4

REPORT INFORMATION
  Report Type: 
  Country: None (occurrence: None)
  Receive Date: 20091014
  Receipt Date: 20091006
  Transmission Date: 20100525
  Serious: Yes (Death)
  Sender: FDA-Public Use
  Company Number: 2009US000592

PATIENT
  Sex: Male
  Weight: 0.4082 kg

DRUGS (10)
  1. PROGRAF [Suspect]
     Indication: DRUG EXPOSURE DURING PREGNANCY
     Dosage: 2 MG, BID, ORAL
     Route: 048
  2. AZATHIOPRINE [Concomitant]
  3. PREDNISONE TAB [Concomitant]
  4. LABETALOL HCL [Concomitant]
  5. METHYLDOPA [Concomitant]
  6. BACTRIM [Concomitant]
  7. COLACE (DOCUSATE SODIUM) [Concomitant]
  8. CALCIUM (CALCIUM) [Concomitant]
  9. MULTIVITAMIN [Concomitant]
  10. MAGNESIUM SULFATE [Concomitant]

REACTIONS (5)
  - AMNIOTIC FLUID VOLUME DECREASED [None]
  - CAESAREAN SECTION [None]
  - MATERNAL DRUGS AFFECTING FOETUS [None]
  - PLACENTAL DISORDER [None]
  - PREMATURE BABY [None]
